FAERS Safety Report 18158799 (Version 2)
Quarter: 2020Q3

REPORT INFORMATION
  Report Type: Spontaneous
  Country: GB (occurrence: GB)
  Receive Date: 20200817
  Receipt Date: 20200819
  Transmission Date: 20201103
  Serious: Yes (Disabling, Other)
  Sender: FDA-Public Use
  Company Number: GB-PFIZER INC-2020314004

PATIENT
  Age: 40 Year
  Sex: Female
  Weight: 81.64 kg

DRUGS (5)
  1. DOXYCYCLINE HYDROCHLORIDE [Concomitant]
     Active Substance: DOXYCYCLINE HYDROCHLORIDE
     Dosage: UNK
  2. PANTOPRAZOLE SODIUM. [Concomitant]
     Active Substance: PANTOPRAZOLE SODIUM
     Dosage: UNK
  3. EFEXOR XL [Suspect]
     Active Substance: VENLAFAXINE HYDROCHLORIDE
     Indication: ANXIETY
     Dosage: 75 MG
     Route: 048
  4. COCODAMOL [Concomitant]
     Active Substance: ACETAMINOPHEN\CODEINE PHOSPHATE
     Dosage: UNK
  5. GALPHARM PARACETAMOL [Concomitant]
     Dosage: UNK

REACTIONS (11)
  - Night sweats [Unknown]
  - Agitation [Unknown]
  - Confusional state [Unknown]
  - Paraesthesia [Unknown]
  - Headache [Unknown]
  - Palpitations [Unknown]
  - Vomiting [Unknown]
  - Tremor [Unknown]
  - Withdrawal syndrome [Not Recovered/Not Resolved]
  - Disturbance in attention [Unknown]
  - Sleep terror [Unknown]
